FAERS Safety Report 6827621-0 (Version None)
Quarter: 2010Q3

REPORT INFORMATION
  Report Type: 
  Country: None (occurrence: None)
  Receive Date: 20100709
  Receipt Date: 20070117
  Transmission Date: 20110219
  Serious: Yes (Other)
  Sender: FDA-Public Use
  Company Number: US-PFIZER INC-2007005761

PATIENT
  Sex: Female

DRUGS (7)
  1. CHANTIX [Suspect]
     Indication: SMOKING CESSATION THERAPY
     Route: 048
     Dates: start: 20070114
  2. LIPITOR [Concomitant]
  3. ANTIHYPERTENSIVES [Concomitant]
  4. LAMISIL [Concomitant]
  5. PRILOSEC [Concomitant]
  6. ZOLOFT [Concomitant]
  7. ALL OTHER THERAPEUTIC PRODUCTS [Concomitant]

REACTIONS (5)
  - ABNORMAL DREAMS [None]
  - DEPRESSION [None]
  - INSOMNIA [None]
  - MENTAL IMPAIRMENT [None]
  - NERVOUSNESS [None]
